FAERS Safety Report 17565243 (Version 1)
Quarter: 2020Q1

REPORT INFORMATION
  Report Type: Spontaneous
  Country: US (occurrence: US)
  Receive Date: 20200320
  Receipt Date: 20200320
  Transmission Date: 20200409
  Serious: No
  Sender: FDA-Public Use
  Company Number: US-MYLANLABS-2020M1028379

PATIENT
  Age: 75 Year
  Sex: Female
  Weight: 119 kg

DRUGS (1)
  1. LIDOCAINE PATCH [Suspect]
     Active Substance: LIDOCAINE
     Indication: ARTHRALGIA
     Dosage: UNK (ON FOR 12 HOURS AND OFF FOR 12 HOURS)
     Route: 003
     Dates: start: 20200309, end: 20200310

REACTIONS (3)
  - Product adhesion issue [Recovering/Resolving]
  - Off label use [Recovered/Resolved]
  - Product quality issue [Recovering/Resolving]

NARRATIVE: CASE EVENT DATE: 20200309
